FAERS Safety Report 10048821 (Version 1)
Quarter: 2014Q1

REPORT INFORMATION
  Report Type: Spontaneous
  Country: US (occurrence: US)
  Receive Date: 20140331
  Receipt Date: 20140331
  Transmission Date: 20141002
  Serious: Yes (Other)
  Sender: FDA-Public Use
  Company Number: US-PFIZER INC-2014090620

PATIENT
  Age: 84 Year
  Sex: Male

DRUGS (2)
  1. EFFEXOR XR [Suspect]
     Dosage: 37.5 MG, UNK
  2. TRAZODONE [Suspect]
     Dosage: UNK

REACTIONS (1)
  - Dementia [Not Recovered/Not Resolved]
